FAERS Safety Report 5635704-6 (Version None)
Quarter: 2008Q1

REPORT INFORMATION
  Report Type: 
  Country: None (occurrence: None)
  Receive Date: 20080220
  Receipt Date: 20080206
  Transmission Date: 20080703
  Serious: Yes (Hospitalization)
  Sender: FDA-Public Use
  Company Number: CIP08000225

PATIENT
  Sex: Female

DRUGS (3)
  1. ACTONEL [Suspect]
     Indication: METASTASES TO BONE
     Dosage: 2.5 MG DAILY, ORAL
     Route: 048
  2. BISPHONAL(DISODIUM INCADRONATE) [Suspect]
     Indication: METASTASES TO BONE
     Dosage: 10 MG DAILY, IV NOS
     Route: 042
  3. AREDIA [Suspect]
     Indication: METASTASES TO BONE
     Dosage: 45 MG DAILY, IV NOS, 90 MG DAILY, IV NOS
     Route: 042

REACTIONS (1)
  - OSTEONECROSIS [None]
